FAERS Safety Report 4722524-X (Version None)
Quarter: 2005Q3

REPORT INFORMATION
  Report Type: 
  Country: None (occurrence: None)
  Receive Date: 20050722
  Receipt Date: 20050712
  Transmission Date: 20060218
  Serious: Yes (Death)
  Sender: FDA-Public Use
  Company Number: US-JNJFOC-20050702523

PATIENT
  Sex: Female

DRUGS (6)
  1. TOPAMAX [Suspect]
     Route: 048
  2. TEGRETOL [Concomitant]
     Dosage: 200 MG IN THE AFTERNOON AND 400 MG AT NIGHT
  3. VICODIN [Concomitant]
  4. VICODIN [Concomitant]
     Indication: HEADACHE
  5. REMIRON [Concomitant]
     Indication: DEPRESSION
  6. REMIRON [Concomitant]

REACTIONS (1)
  - CONVULSION [None]
